FAERS Safety Report 17817530 (Version 1)
Quarter: 2020Q2

REPORT INFORMATION
  Report Type: Report from Study
  Country: KR (occurrence: KR)
  Receive Date: 20200522
  Receipt Date: 20200522
  Transmission Date: 20200714
  Serious: Yes (Hospitalization, Other)
  Sender: FDA-Public Use
  Company Number: KR-ROCHE-2601576

PATIENT
  Age: 56 Year
  Sex: Female

DRUGS (37)
  1. TRASTUZUMAB. [Suspect]
     Active Substance: TRASTUZUMAB
     Indication: BRAIN NEOPLASM MALIGNANT
     Route: 042
     Dates: start: 20191024, end: 20191024
  2. OMP [Concomitant]
     Active Substance: OMEPRAZOLE
  3. ALMAGEL [ALMAGATE] [Concomitant]
     Active Substance: ALMAGATE
  4. TAMIPOOL [Concomitant]
     Active Substance: VITAMINS
  5. SANCUSO [Concomitant]
     Active Substance: GRANISETRON
  6. DICAMAX [Concomitant]
  7. TYLENOL ER [Concomitant]
     Active Substance: ACETAMINOPHEN
  8. MACPERAN [Concomitant]
     Active Substance: METOCLOPRAMIDE HYDROCHLORIDE
  9. ROCEPHIN [CEFTRIAXONE] [Concomitant]
  10. LASIX [Concomitant]
     Active Substance: FUROSEMIDE
  11. ALENMAX PLUS D [Concomitant]
  12. TARGIN [Concomitant]
     Active Substance: NALOXONE HYDROCHLORIDE\OXYCODONE HYDROCHLORIDE
  13. PLAKON [Concomitant]
  14. IRCODON [Concomitant]
     Active Substance: OXYCODONE HYDROCHLORIDE
  15. FEROBA YOU [Concomitant]
  16. DUROGESIC [Concomitant]
     Active Substance: FENTANYL
  17. MUCOSTA [Concomitant]
     Active Substance: REBAMIPIDE
  18. PERTUZUMAB. [Suspect]
     Active Substance: PERTUZUMAB
     Indication: BRAIN NEOPLASM MALIGNANT
     Route: 042
     Dates: start: 20191024, end: 20191024
  19. DOCETAXEL. [Suspect]
     Active Substance: DOCETAXEL
     Indication: BRAIN NEOPLASM MALIGNANT
     Route: 042
     Dates: start: 20191024
  20. CELEBREX [Concomitant]
     Active Substance: CELECOXIB
  21. NAXEN-F [Concomitant]
  22. LOPAINE [Concomitant]
  23. XGEVA [Concomitant]
     Active Substance: DENOSUMAB
  24. MEGACE ORAL SUSPENSION [Concomitant]
  25. TRASTUZUMAB. [Suspect]
     Active Substance: TRASTUZUMAB
     Route: 042
     Dates: start: 20191114
  26. DEXAMETHASONE. [Concomitant]
     Active Substance: DEXAMETHASONE
  27. SMECTA [Concomitant]
     Active Substance: MONTMORILLONITE
  28. MOPRIDE [MOSAPRIDE CITRATE] [Concomitant]
  29. GASTER [Concomitant]
     Active Substance: FAMOTIDINE
  30. DOCETAXEL. [Suspect]
     Active Substance: DOCETAXEL
     Route: 042
     Dates: start: 20191114, end: 20191205
  31. DOCETAXEL. [Suspect]
     Active Substance: DOCETAXEL
     Route: 042
     Dates: start: 20191225
  32. MORPHINE SULFATE. [Concomitant]
     Active Substance: MORPHINE SULFATE
  33. PANTOLINE [Concomitant]
     Active Substance: PANTOPRAZOLE SODIUM
  34. PERTUZUMAB. [Suspect]
     Active Substance: PERTUZUMAB
     Route: 042
     Dates: start: 20191114
  35. ALOXI [Concomitant]
     Active Substance: PALONOSETRON HYDROCHLORIDE
  36. MEDILAC DS [Concomitant]
  37. PANTOPRAZOLE [Concomitant]
     Active Substance: PANTOPRAZOLE

REACTIONS (15)
  - Abdominal pain [Recovered/Resolved]
  - Pain in extremity [Recovering/Resolving]
  - Abdominal pain upper [Recovered/Resolved]
  - Arthralgia [Recovered/Resolved]
  - Feeling cold [Recovered/Resolved]
  - Nausea [Recovered/Resolved]
  - Gastric ulcer haemorrhage [Recovered/Resolved]
  - Nausea [Recovered/Resolved]
  - Pyrexia [Recovered/Resolved]
  - Colitis [Recovered/Resolved]
  - Neutropenia [Recovered/Resolved]
  - Vomiting [Recovered/Resolved]
  - Abdominal distension [Recovered/Resolved]
  - Flank pain [Recovered/Resolved]
  - Vomiting [Recovered/Resolved]

NARRATIVE: CASE EVENT DATE: 2020
